FAERS Safety Report 8203208-2 (Version None)
Quarter: 2012Q1

REPORT INFORMATION
  Report Type: 
  Country: None (occurrence: None)
  Receive Date: 20120312
  Receipt Date: 20120302
  Transmission Date: 20120608
  Serious: Yes (Death)
  Sender: FDA-Public Use
  Company Number: GB-ROCHE-1023815

PATIENT
  Sex: Male

DRUGS (12)
  1. METOCLOPRAMIDE [Concomitant]
  2. SPIRONOLACTONE [Concomitant]
  3. FUROSEMIDE [Concomitant]
  4. TIOTROPIUM [Concomitant]
  5. PREDNISONE [Concomitant]
  6. SANDO K [Concomitant]
  7. AZATHIOPRINE [Concomitant]
  8. MABTHERA [Suspect]
     Indication: PRODUCT USED FOR UNKNOWN INDICATION
     Dates: start: 20081208
  9. DIGOXIN [Concomitant]
  10. AZATHIOPRINE [Concomitant]
  11. OMEPRAZOLE [Concomitant]
  12. ETODOLAC [Concomitant]

REACTIONS (2)
  - PULMONARY FIBROSIS [None]
  - BRONCHOPNEUMONIA [None]
